FAERS Safety Report 9385898 (Version 1)
Quarter: 2013Q3

REPORT INFORMATION
  Report Type: Spontaneous
  Country: TR (occurrence: TR)
  Receive Date: 20130705
  Receipt Date: 20130711
  Transmission Date: 20140515
  Serious: Yes (Life-Threatening, Hospitalization, Other)
  Sender: FDA-Public Use
  Company Number: TR-ASTRAZENECA-2013SE50641

PATIENT
  Age: 29 Year
  Sex: Female

DRUGS (4)
  1. QUETIAPINE [Suspect]
     Dosage: 9 GRAMS
     Route: 048
  2. ESCITALOPRAM [Suspect]
     Dosage: 280 MG
     Route: 048
  3. IBUPROFEN [Suspect]
     Dosage: 4 GRAMS
     Route: 048
  4. AMOXICILLIN [Suspect]
     Dosage: 5 GRAMS
     Route: 048

REACTIONS (7)
  - Overdose [Recovered/Resolved]
  - Suicide attempt [Recovered/Resolved]
  - Coma [Recovered/Resolved]
  - Sinus tachycardia [Recovered/Resolved]
  - Depressed level of consciousness [Recovered/Resolved]
  - Hypotension [Recovered/Resolved]
  - Electrocardiogram QRS complex prolonged [Recovered/Resolved]
